FAERS Safety Report 15782396 (Version 1)
Quarter: 2019Q1

REPORT INFORMATION
  Report Type: Spontaneous
  Country: CA (occurrence: CA)
  Receive Date: 20190102
  Receipt Date: 20190102
  Transmission Date: 20190417
  Serious: Yes (Hospitalization, Other)
  Sender: FDA-Public Use
  Company Number: CA-BAYER-2018-242885

PATIENT
  Age: 78 Year
  Sex: Female

DRUGS (17)
  1. DICLOFENAC [Suspect]
     Active Substance: DICLOFENAC
     Indication: RHEUMATOID ARTHRITIS
  2. ENBREL [Suspect]
     Active Substance: ETANERCEPT
     Route: 058
  3. HYDROXYCHLOROQUINE [Suspect]
     Active Substance: HYDROXYCHLOROQUINE
     Indication: RHEUMATOID ARTHRITIS
  4. METHOTREXATE. [Suspect]
     Active Substance: METHOTREXATE
  5. SODIUM AUROTHIOMALATE [Suspect]
     Active Substance: GOLD SODIUM THIOMALATE
     Indication: RHEUMATOID ARTHRITIS
     Route: 051
  6. SODIUM AUROTHIOMALATE [Suspect]
     Active Substance: GOLD SODIUM THIOMALATE
     Indication: RHEUMATOID ARTHRITIS
     Dosage: UNK
  7. SULFAMETHOXAZOLE AND TRIMETHOPRIM [Suspect]
     Active Substance: SULFAMETHOXAZOLE\TRIMETHOPRIM
     Indication: RHEUMATOID ARTHRITIS
  8. ARAVA [Suspect]
     Active Substance: LEFLUNOMIDE
     Indication: RHEUMATOID ARTHRITIS
     Route: 048
  9. HUMIRA [Suspect]
     Active Substance: ADALIMUMAB
     Indication: RHEUMATOID ARTHRITIS
     Route: 058
  10. ASCORBIC ACID. [Suspect]
     Active Substance: ASCORBIC ACID
     Indication: RHEUMATOID ARTHRITIS
  11. ASPIRIN. [Suspect]
     Active Substance: ASPIRIN
     Indication: RHEUMATOID ARTHRITIS
     Dosage: UNK
     Route: 048
  12. DICLOFENAC POTASSIUM. [Suspect]
     Active Substance: DICLOFENAC POTASSIUM
     Indication: RHEUMATOID ARTHRITIS
  13. GOLD [Suspect]
     Active Substance: GOLD
  14. PLAQUENIL [Suspect]
     Active Substance: HYDROXYCHLOROQUINE SULFATE
     Indication: RHEUMATOID ARTHRITIS
     Route: 048
  15. TRAMADOL HYDROCHLORIDE. [Concomitant]
     Active Substance: TRAMADOL HYDROCHLORIDE
  16. ALEVE [Suspect]
     Active Substance: NAPROXEN SODIUM
     Indication: RHEUMATOID ARTHRITIS
     Dosage: UNK
  17. MOTRIN [Suspect]
     Active Substance: IBUPROFEN
     Indication: RHEUMATOID ARTHRITIS

REACTIONS (24)
  - Hypophagia [Not Recovered/Not Resolved]
  - Gastrointestinal disorder [Not Recovered/Not Resolved]
  - Decreased appetite [Not Recovered/Not Resolved]
  - Headache [Not Recovered/Not Resolved]
  - Shoulder arthroplasty [Not Recovered/Not Resolved]
  - Functional gastrointestinal disorder [Not Recovered/Not Resolved]
  - Weight decreased [Not Recovered/Not Resolved]
  - Adverse reaction [Not Recovered/Not Resolved]
  - Gastrointestinal pain [Not Recovered/Not Resolved]
  - Abdominal discomfort [Not Recovered/Not Resolved]
  - Vomiting [Not Recovered/Not Resolved]
  - Arthropathy [Not Recovered/Not Resolved]
  - Drug hypersensitivity [Not Recovered/Not Resolved]
  - Feeding disorder [Not Recovered/Not Resolved]
  - Abdominal pain upper [Not Recovered/Not Resolved]
  - Dizziness [Not Recovered/Not Resolved]
  - Ear infection [Not Recovered/Not Resolved]
  - Eating disorder [Not Recovered/Not Resolved]
  - Nausea [Not Recovered/Not Resolved]
  - Musculoskeletal disorder [Not Recovered/Not Resolved]
  - Foot operation [Not Recovered/Not Resolved]
  - Off label use [Not Recovered/Not Resolved]
  - Deafness transitory [Not Recovered/Not Resolved]
  - Pharyngitis [Not Recovered/Not Resolved]
